FAERS Safety Report 7904076-6 (Version None)
Quarter: 2011Q4

REPORT INFORMATION
  Report Type: 
  Country: None (occurrence: None)
  Receive Date: 20111109
  Receipt Date: 20111102
  Transmission Date: 20120403
  Serious: Yes (Hospitalization, Other)
  Sender: FDA-Public Use
  Company Number: JP-MERCK-1110USA04065

PATIENT
  Age: 62 Year
  Sex: Female

DRUGS (6)
  1. PURSENNID (SENNOSIDES) [Concomitant]
     Indication: CONSTIPATION
     Route: 048
     Dates: start: 20111017
  2. CONIEL [Suspect]
     Indication: HYPERTENSION
     Route: 048
     Dates: start: 20111017, end: 20111025
  3. COZAAR [Suspect]
     Indication: HYPERTENSION
     Route: 048
     Dates: start: 20111017, end: 20111025
  4. NESPO [Concomitant]
     Indication: NEPHROGENIC ANAEMIA
     Route: 042
     Dates: start: 20111017
  5. ZOLPIDEM [Concomitant]
     Indication: INSOMNIA
     Route: 048
     Dates: start: 20111017
  6. REZALTAS [Concomitant]
     Route: 048

REACTIONS (1)
  - PANCYTOPENIA [None]
